FAERS Safety Report 21347916 (Version 1)
Quarter: 2022Q3

REPORT INFORMATION
  Report Type: Report from Study
  Country: KR (occurrence: KR)
  Receive Date: 20220919
  Receipt Date: 20220919
  Transmission Date: 20221027
  Serious: Yes (Death, Hospitalization, Other)
  Sender: FDA-Public Use
  Company Number: KR-CELLTRION INC.-2022KR012223

PATIENT

DRUGS (29)
  1. INVESTIGATIONAL BIOSIMILARS [Suspect]
     Active Substance: INVESTIGATIONAL BIOSIMILARS
     Indication: Chemotherapy
     Dosage: UNK
     Route: 042
     Dates: start: 20220727, end: 20220817
  2. GABAPENTIN [Concomitant]
     Active Substance: GABAPENTIN
     Indication: Prophylaxis
     Dosage: 600 MG, TID PO
     Route: 048
     Dates: start: 20220210, end: 20220907
  3. DULOXETINE [Concomitant]
     Active Substance: DULOXETINE
     Indication: Depression
     Dosage: 60 MG, QD PO
     Route: 048
     Dates: start: 20220524, end: 20220907
  4. OLANZAPINE [Concomitant]
     Active Substance: OLANZAPINE
     Indication: Depression
     Dosage: 2.5 MG, QD PO
     Route: 048
     Dates: start: 20220510, end: 20220907
  5. ESCITALOPRAM [Concomitant]
     Active Substance: ESCITALOPRAM OXALATE
     Indication: Depression
     Dosage: 5 MG, QD PO
     Route: 048
     Dates: start: 20220409, end: 20220907
  6. NORTRIPTYLINE [Concomitant]
     Active Substance: NORTRIPTYLINE
     Indication: Depression
     Dosage: 10 MG, QD PO
     Route: 048
     Dates: start: 20220503, end: 20220907
  7. PRUCALOPRIDE [Concomitant]
     Active Substance: PRUCALOPRIDE
     Indication: Prophylaxis
     Dosage: 2 MG, QD PO
     Route: 048
     Dates: start: 20220414, end: 20220907
  8. FAMOTIDINE [Concomitant]
     Active Substance: FAMOTIDINE
     Indication: Prophylaxis
     Dosage: 20 MG, BID PO
     Route: 048
     Dates: start: 20211207, end: 20220907
  9. ARONAMIN C PLUS [Concomitant]
     Indication: Prophylaxis
     Dosage: 1TAB BID PO
     Route: 048
     Dates: start: 20220210, end: 20220907
  10. FOLATE SODIUM [Concomitant]
     Active Substance: FOLATE SODIUM
     Indication: Prophylaxis
     Dosage: 1 MG, QD PO
     Route: 048
     Dates: start: 20220210, end: 20220907
  11. MIDODRINE [Concomitant]
     Active Substance: MIDODRINE
     Indication: Hypotension
     Dosage: 2.5 MG, BID PO
     Route: 048
     Dates: start: 20220705, end: 20220907
  12. LOPMIN [Concomitant]
     Indication: Prophylaxis against diarrhoea
     Dosage: 2 MG, PRN APPLY
     Dates: start: 20210824, end: 20220907
  13. METOCLOPRAMIDE [Concomitant]
     Active Substance: METOCLOPRAMIDE
     Indication: Prophylaxis
     Dosage: 5 MG, TID PO
     Route: 048
     Dates: start: 20210824, end: 20220907
  14. OMAPONE PERI [Concomitant]
     Indication: Nutritional supplementation
     Dosage: 952 ML, QD
     Route: 042
     Dates: start: 20220829, end: 20220906
  15. PANTOPRAZOLE [Concomitant]
     Active Substance: PANTOPRAZOLE
  16. SIMETHICONE (DIMETHICONE) [Concomitant]
     Active Substance: DIMETHICONE
  17. LIDOCAINE VISCOUS [Concomitant]
     Active Substance: LIDOCAINE HYDROCHLORIDE
  18. TRAMADOL [Concomitant]
     Active Substance: TRAMADOL
  19. CHLORPHENIRAMINE MALEATE [Concomitant]
     Active Substance: CHLORPHENIRAMINE MALEATE
  20. KETAMINE HYDROCHLORIDE [Concomitant]
     Active Substance: KETAMINE HYDROCHLORIDE
  21. FUROSEMIDE [Concomitant]
     Active Substance: FUROSEMIDE
  22. ALBUMIN HUMAN [Concomitant]
     Active Substance: ALBUMIN HUMAN
  23. PHAZYME COMPLEX [Concomitant]
  24. KCL [Concomitant]
     Active Substance: POTASSIUM CHLORIDE
  25. SODIUM CHLORIDE [Concomitant]
     Active Substance: SODIUM CHLORIDE
  26. POTASSIUM CHLORIDE [Concomitant]
     Active Substance: POTASSIUM CHLORIDE
  27. CENTELLA ASIATICA WHOLE [Concomitant]
     Active Substance: CENTELLA ASIATICA WHOLE
  28. MUPIROCIN [Concomitant]
     Active Substance: MUPIROCIN
  29. TRAMAROL ER [Concomitant]

REACTIONS (6)
  - Disease progression [Fatal]
  - Duodenal obstruction [Recovered/Resolved]
  - Abdominal distension [Recovering/Resolving]
  - Obstruction gastric [Not Recovered/Not Resolved]
  - Pneumonia klebsiella [Unknown]
  - Diarrhoea [Unknown]

NARRATIVE: CASE EVENT DATE: 20220729
